FAERS Safety Report 9525124 (Version 2)
Quarter: 2014Q1

REPORT INFORMATION
  Report Type: Spontaneous
  Country: US (occurrence: None)
  Receive Date: 20130912
  Receipt Date: 20140325
  Transmission Date: 20141002
  Serious: Yes (Other)
  Sender: FDA-Public Use
  Company Number: 2013-US-000042

PATIENT
  Age: 53 Year
  Sex: Male
  Weight: 100.7 kg

DRUGS (2)
  1. XYREM [Suspect]
     Indication: NARCOLEPSY
     Route: 048
     Dates: start: 20040105
  2. ALL OTHER THERAPEUTIC PRODUCTS [Concomitant]

REACTIONS (7)
  - Ankle fracture [None]
  - Fall [None]
  - Salivary gland enlargement [None]
  - Tooth disorder [None]
  - Nasopharyngitis [None]
  - Nasopharyngitis [None]
  - Joint swelling [None]
